FAERS Safety Report 6181824-X (Version None)
Quarter: 2009Q2

REPORT INFORMATION
  Report Type: 
  Country: None (occurrence: None)
  Receive Date: 20090506
  Receipt Date: 20090430
  Transmission Date: 20091009
  Serious: Yes (Life-Threatening, Hospitalization)
  Sender: FDA-Public Use
  Company Number: PHHY2009IT16498

PATIENT
  Sex: Male

DRUGS (5)
  1. COMBISARTAN [Suspect]
     Indication: HYPERTENSION
     Dosage: UNK
     Route: 048
     Dates: start: 20090107, end: 20090121
  2. ALDACTONE [Suspect]
     Indication: HYPERTENSION
     Dosage: UNK
     Route: 048
     Dates: start: 20090107, end: 20090121
  3. NORVASC [Concomitant]
     Dosage: UNK
     Route: 048
     Dates: start: 20080101, end: 20090121
  4. EFFEXOR [Concomitant]
     Dosage: UNK
     Route: 048
     Dates: start: 20080101, end: 20090121
  5. LASIX [Concomitant]
     Dosage: UNK
     Route: 048
     Dates: start: 20090101, end: 20090121

REACTIONS (4)
  - ELECTROCARDIOGRAM ABNORMAL [None]
  - HYPERKALAEMIA [None]
  - PRURITUS [None]
  - QUADRIPARESIS [None]
